FAERS Safety Report 17243408 (Version 1)
Quarter: 2020Q1

REPORT INFORMATION
  Report Type: Report from Study
  Country: None (occurrence: US)
  Receive Date: 20200107
  Receipt Date: 20200107
  Transmission Date: 20200409
  Serious: Yes (Other)
  Sender: FDA-Public Use
  Company Number: US-ABBVIE-20K-163-3220238-00

PATIENT

DRUGS (2)
  1. IMBRUVICA [Suspect]
     Active Substance: IBRUTINIB
     Indication: WALDENSTROM^S MACROGLOBULINAEMIA
     Route: 065
  2. IMBRUVICA [Suspect]
     Active Substance: IBRUTINIB
     Indication: MANTLE CELL LYMPHOMA

REACTIONS (6)
  - Disease progression [Unknown]
  - Myalgia [Unknown]
  - Atrial fibrillation [Unknown]
  - Drug intolerance [Unknown]
  - Infection [Unknown]
  - Fatigue [Unknown]
